FAERS Safety Report 7624196-3 (Version None)
Quarter: 2011Q3

REPORT INFORMATION
  Report Type: 
  Country: None (occurrence: None)
  Receive Date: 20110720
  Receipt Date: 20110720
  Transmission Date: 20111222
  Serious: No
  Sender: FDA-Public Use
  Company Number: None

PATIENT
  Age: 29 Year
  Sex: Male
  Weight: 67.131 kg

DRUGS (1)
  1. TUBERSOL [Suspect]
     Indication: MYCOBACTERIUM TUBERCULOSIS COMPLEX TEST
     Dosage: 0.1ML INTRADERMAL
     Dates: start: 20110712, end: 20110712

REACTIONS (1)
  - RASH ERYTHEMATOUS [None]
